FAERS Safety Report 23945227 (Version 1)
Quarter: 2024Q2

REPORT INFORMATION
  Report Type: Spontaneous
  Country: CN (occurrence: CN)
  Receive Date: 20240606
  Receipt Date: 20240606
  Transmission Date: 20240716
  Serious: Yes (Hospitalization)
  Sender: FDA-Public Use
  Company Number: CN-ABBVIE-5786314

PATIENT
  Age: 75 Year
  Sex: Female
  Weight: 51 kg

DRUGS (3)
  1. VENETOCLAX [Suspect]
     Active Substance: VENETOCLAX
     Indication: Acute myeloid leukaemia
     Route: 048
     Dates: start: 20240328, end: 20240408
  2. AZACITIDINE [Suspect]
     Active Substance: AZACITIDINE
     Indication: Acute myeloid leukaemia
     Dosage: AZACITIDINE FOR INJECTION
     Route: 058
     Dates: start: 20240328, end: 20240403
  3. STERILE WATER [Concomitant]
     Active Substance: WATER
     Indication: Vehicle solution use
     Dosage: STERILE WATER FOR INJECTION
     Route: 058
     Dates: start: 20240328, end: 20240403

REACTIONS (2)
  - Myelosuppression [Recovering/Resolving]
  - Pyrexia [Recovered/Resolved]

NARRATIVE: CASE EVENT DATE: 20240425
